FAERS Safety Report 7596110-0 (Version None)
Quarter: 2011Q3

REPORT INFORMATION
  Report Type: 
  Country: None (occurrence: None)
  Receive Date: 20110707
  Receipt Date: 20110629
  Transmission Date: 20111222
  Serious: Yes (Hospitalization)
  Sender: FDA-Public Use
  Company Number: CA-JNJFOC-20110613077

PATIENT
  Sex: Male
  Weight: 90.72 kg

DRUGS (9)
  1. STELARA [Suspect]
     Indication: PSORIASIS
     Route: 058
     Dates: start: 20100715
  2. APO-FUROSEMIDE [Concomitant]
  3. VENTOLIN HFA [Concomitant]
     Route: 055
  4. SPIRIVA [Concomitant]
  5. METFORMIN HCL [Concomitant]
  6. ZYLOPRIM [Concomitant]
  7. SPIRONOLACTONE [Concomitant]
  8. ADVAIR DISKUS 100/50 [Concomitant]
     Route: 055
  9. STELARA [Suspect]
     Route: 058
     Dates: start: 20110429

REACTIONS (1)
  - DYSPNOEA [None]
